FAERS Safety Report 10462505 (Version 1)
Quarter: 2014Q3

REPORT INFORMATION
  Report Type: Spontaneous
  Country: PT (occurrence: PT)
  Receive Date: 20140918
  Receipt Date: 20140918
  Transmission Date: 20150326
  Serious: Yes (Hospitalization)
  Sender: FDA-Public Use
  Company Number: PHHY2014PT119446

PATIENT
  Age: 8 Year
  Sex: Female

DRUGS (5)
  1. CLAVULANIC ACID [Concomitant]
     Active Substance: CLAVULANIC ACID
  2. VALPROIC ACID. [Suspect]
     Active Substance: VALPROIC ACID
     Indication: EPILEPSY
  3. IBUPROFEN. [Concomitant]
     Active Substance: IBUPROFEN
     Indication: EPILEPSY
  4. CARBAMAZEPINE. [Suspect]
     Active Substance: CARBAMAZEPINE
     Indication: EPILEPSY
  5. AMOXICILLIN. [Concomitant]
     Active Substance: AMOXICILLIN

REACTIONS (13)
  - Pyrexia [Recovering/Resolving]
  - Ear pain [Unknown]
  - Drug reaction with eosinophilia and systemic symptoms [Recovering/Resolving]
  - Rash [Recovering/Resolving]
  - Odynophagia [Recovering/Resolving]
  - Oedema peripheral [Recovering/Resolving]
  - Cheilitis [Unknown]
  - Decreased appetite [Unknown]
  - Lymphadenopathy [Unknown]
  - Eosinophilia [Unknown]
  - Pruritus generalised [Recovering/Resolving]
  - Face oedema [Recovering/Resolving]
  - Rash generalised [Recovering/Resolving]
